FAERS Safety Report 13253922 (Version 1)
Quarter: 2017Q1

REPORT INFORMATION
  Report Type: Spontaneous
  Country: IT (occurrence: IT)
  Receive Date: 20170220
  Receipt Date: 20170220
  Transmission Date: 20170428
  Serious: Yes (Hospitalization)
  Sender: FDA-Public Use
  Company Number: IT-ROCHE-1895663

PATIENT
  Age: 53 Year
  Sex: Female

DRUGS (3)
  1. HERCEPTIN [Suspect]
     Active Substance: TRASTUZUMAB
     Indication: BREAST CANCER
     Dosage: 150 MG - 1 VIAL?POWDER AND SOLVENT FOR SOLUTION FOR INTRAVENOUS INFUSION
     Route: 042
     Dates: start: 20170109, end: 20170202
  2. PERJETA [Suspect]
     Active Substance: PERTUZUMAB
     Indication: BREAST CANCER
     Dosage: 420 MG 30 MG/ML - 1 VIAL
     Route: 042
     Dates: start: 20170109, end: 20170202
  3. TAXOTERE [Suspect]
     Active Substance: DOCETAXEL
     Indication: BREAST CANCER
     Dosage: 160 MG/8 ML VIAL (GLASS)^ 1 VIAL CONTAINING 8 ML
     Route: 042
     Dates: start: 20170109, end: 20170202

REACTIONS (2)
  - Dermatitis exfoliative [Not Recovered/Not Resolved]
  - Mucosal inflammation [Not Recovered/Not Resolved]

NARRATIVE: CASE EVENT DATE: 20170202
